FAERS Safety Report 11684013 (Version 1)
Quarter: 2015Q4

REPORT INFORMATION
  Report Type: Spontaneous
  Country: US (occurrence: US)
  Receive Date: 20151029
  Receipt Date: 20151029
  Transmission Date: 20160304
  Serious: Yes (Hospitalization)
  Sender: FDA-Public Use
  Company Number: US-BAYER-2015-449380

PATIENT
  Age: 64 Year
  Sex: Female

DRUGS (3)
  1. BISACODYL. [Suspect]
     Active Substance: BISACODYL
     Indication: COLONOSCOPY
     Dosage: 3 TABLETS
  2. MACROGOL 3350 [Suspect]
     Active Substance: POLYETHYLENE GLYCOL 3350
     Indication: COLONOSCOPY
     Dosage: 238 G MIXED WITH GATORADE
  3. MACROGOL 3350 [Suspect]
     Active Substance: POLYETHYLENE GLYCOL 3350
     Indication: COLONOSCOPY
     Dosage: 3 HOURS PRIOR TO PROCEDURE

REACTIONS (1)
  - Colitis ischaemic [Recovering/Resolving]
